FAERS Safety Report 5630391-5 (Version None)
Quarter: 2008Q1

REPORT INFORMATION
  Report Type: 
  Country: None (occurrence: None)
  Receive Date: 20080219
  Receipt Date: 20080215
  Transmission Date: 20080703
  Serious: Yes (Other)
  Sender: FDA-Public Use
  Company Number: PHNU2007DE03712

PATIENT
  Age: 80 Year
  Sex: Female
  Weight: 65 kg

DRUGS (2)
  1. EXELON [Suspect]
     Indication: DEMENTIA ALZHEIMER'S TYPE
     Dosage: 4.6 MG/24 HR PATCH
     Route: 062
     Dates: start: 20071024, end: 20071104
  2. EXELON [Concomitant]
     Dosage: 1.5 MG, BID
     Route: 048
     Dates: start: 20071105

REACTIONS (2)
  - HALLUCINATION [None]
  - PARANOIA [None]
